FAERS Safety Report 11112358 (Version 1)
Quarter: 2015Q2

REPORT INFORMATION
  Report Type: Spontaneous
  Country: US (occurrence: None)
  Receive Date: 20150513
  Receipt Date: 20150513
  Transmission Date: 20150821
  Serious: Yes (Hospitalization, Disabling)
  Sender: FDA-Public Use
  Company Number: None

PATIENT
  Age: 57 Year
  Sex: Female
  Weight: 111.13 kg

DRUGS (17)
  1. METOPROLOL [Concomitant]
     Active Substance: METOPROLOL
  2. DIGOXIN. [Concomitant]
     Active Substance: DIGOXIN
  3. KEPPRA [Concomitant]
     Active Substance: LEVETIRACETAM
  4. KEFLEX [Concomitant]
     Active Substance: CEPHALEXIN
  5. TECFIDERA [Suspect]
     Active Substance: DIMETHYL FUMARATE
     Indication: MULTIPLE SCLEROSIS
     Route: 048
  6. METHADONE [Concomitant]
     Active Substance: METHADONE HYDROCHLORIDE
  7. GABAPENTIN. [Concomitant]
     Active Substance: GABAPENTIN
  8. COUMADIN [Concomitant]
     Active Substance: WARFARIN SODIUM
  9. FLUOXETINE [Concomitant]
     Active Substance: FLUOXETINE\FLUOXETINE HYDROCHLORIDE
  10. NEXIUM [Concomitant]
     Active Substance: ESOMEPRAZOLE MAGNESIUM
  11. BACLOFEN. [Concomitant]
     Active Substance: BACLOFEN
  12. LISINOPRIL. [Concomitant]
     Active Substance: LISINOPRIL
  13. ROPINIROLE. [Concomitant]
     Active Substance: ROPINIROLE
  14. FLONASE [Concomitant]
     Active Substance: FLUTICASONE PROPIONATE
  15. CELEBREX [Concomitant]
     Active Substance: CELECOXIB
  16. NORCO [Concomitant]
     Active Substance: ACETAMINOPHEN\HYDROCODONE BITARTRATE
  17. MULTIVITAMIN [Concomitant]
     Active Substance: VITAMINS

REACTIONS (5)
  - Fall [None]
  - Feeling abnormal [None]
  - Generalised tonic-clonic seizure [None]
  - Head injury [None]
  - Face injury [None]

NARRATIVE: CASE EVENT DATE: 20150402
